FAERS Safety Report 18445531 (Version 1)
Quarter: 2020Q4

REPORT INFORMATION
  Report Type: Spontaneous
  Country: US (occurrence: US)
  Receive Date: 20201029
  Receipt Date: 20201029
  Transmission Date: 20210114
  Serious: Yes (Death)
  Sender: FDA-Public Use
  Company Number: None

PATIENT
  Age: 73 Year
  Sex: Female

DRUGS (11)
  1. FELXERIL [Concomitant]
  2. PATANOL [Concomitant]
     Active Substance: OLOPATADINE HYDROCHLORIDE
  3. BENICAR [Concomitant]
     Active Substance: OLMESARTAN MEDOXOMIL
  4. XELJANZ [Suspect]
     Active Substance: TOFACITINIB CITRATE
     Indication: PSORIASIS
     Route: 048
     Dates: start: 20200811, end: 20201027
  5. GLUCOSAMINE [Concomitant]
     Active Substance: GLUCOSAMINE
  6. SYNTRHOID [Concomitant]
  7. PLAQUENIL [Concomitant]
     Active Substance: HYDROXYCHLOROQUINE SULFATE
  8. PREMARION [Concomitant]
  9. RHINOCORT [Concomitant]
     Active Substance: BUDESONIDE
  10. HUMIRA [Concomitant]
     Active Substance: ADALIMUMAB
  11. CALCIUM [Concomitant]
     Active Substance: CALCIUM

REACTIONS (1)
  - Death [None]

NARRATIVE: CASE EVENT DATE: 20201027
